FAERS Safety Report 4357912-7 (Version None)
Quarter: 2004Q2

REPORT INFORMATION
  Report Type: 
  Country: None (occurrence: None)
  Receive Date: 20040514
  Receipt Date: 20030130
  Transmission Date: 20050107
  Serious: Yes (Other)
  Sender: FDA-Public Use
  Company Number: PHEH2003US01127

PATIENT
  Age: 66 Year
  Sex: Female

DRUGS (7)
  1. AREDIA [Suspect]
     Indication: BREAST CANCER
     Dosage: 90MG/250CC
     Dates: start: 20000225, end: 20010424
  2. TAMOXIFEN CITRATE [Concomitant]
  3. TAXOTERE [Concomitant]
  4. DECADRON [Concomitant]
  5. ZOFRAN [Concomitant]
  6. KYTRIL [Concomitant]
  7. EPOGEN [Concomitant]

REACTIONS (1)
  - OSTEONECROSIS [None]
